FAERS Safety Report 10263173 (Version 2)
Quarter: 2014Q2

REPORT INFORMATION
  Report Type: Report from Study
  Country: US (occurrence: US)
  Receive Date: 20140626
  Receipt Date: 20140626
  Transmission Date: 20141212
  Serious: Yes (Hospitalization, Other)
  Sender: FDA-Public Use
  Company Number: US-MYLANLABS-2014S1004907

PATIENT
  Age: 57 Year
  Sex: Female
  Weight: 79.38 kg

DRUGS (17)
  1. CLOZAPINE TABLETS [Suspect]
     Indication: PSYCHOTIC DISORDER
     Route: 048
     Dates: start: 201312, end: 20140226
  2. CLOZAPINE TABLETS [Suspect]
     Indication: SCHIZOAFFECTIVE DISORDER BIPOLAR TYPE
     Route: 048
     Dates: start: 201312, end: 20140226
  3. CLOZAPINE TABLETS [Suspect]
     Indication: PSYCHOTIC DISORDER
     Route: 048
     Dates: start: 201312, end: 20140226
  4. CLOZAPINE TABLETS [Suspect]
     Indication: SCHIZOAFFECTIVE DISORDER BIPOLAR TYPE
     Route: 048
     Dates: start: 201312, end: 20140226
  5. CLOZAPINE TABLETS [Suspect]
     Indication: PSYCHOTIC DISORDER
     Route: 048
     Dates: start: 201312, end: 201402
  6. CLOZAPINE TABLETS [Suspect]
     Indication: SCHIZOAFFECTIVE DISORDER BIPOLAR TYPE
     Route: 048
     Dates: start: 201312, end: 201402
  7. AUGMENTIN [Suspect]
     Dates: start: 201402
  8. COGENTIN [Concomitant]
     Route: 048
  9. DOCUSATE [Concomitant]
     Route: 048
  10. FERROUS SULFATE [Concomitant]
     Route: 048
  11. AMOXICILLIN [Concomitant]
  12. HALODOL [Concomitant]
  13. LEVOTHYROXINE [Concomitant]
  14. METOPROLOL SUCCINATE [Concomitant]
  15. MULTIVITAMIN [Concomitant]
  16. MIRALAX /00754501/ [Concomitant]
  17. TOPAMAX [Concomitant]

REACTIONS (4)
  - Drug ineffective [Not Recovered/Not Resolved]
  - Psychotic disorder [Not Recovered/Not Resolved]
  - Granulocytopenia [Recovered/Resolved]
  - Leukopenia [Recovered/Resolved]
